FAERS Safety Report 5624551-7 (Version None)
Quarter: 2008Q1

REPORT INFORMATION
  Report Type: 
  Country: None (occurrence: None)
  Receive Date: 20080213
  Receipt Date: 20080129
  Transmission Date: 20080703
  Serious: Yes (Hospitalization)
  Sender: FDA-Public Use
  Company Number: US-AMGEN-US263023

PATIENT
  Sex: Male

DRUGS (7)
  1. PROCRIT [Suspect]
     Indication: RENAL FAILURE CHRONIC
     Route: 065
     Dates: start: 20050101
  2. ASPIRIN [Concomitant]
     Route: 065
     Dates: start: 20050101
  3. PLAVIX [Concomitant]
     Route: 065
     Dates: start: 20050101
  4. RENAGEL [Concomitant]
     Route: 065
  5. IRON [Concomitant]
     Route: 065
  6. FOLIC ACID [Concomitant]
     Route: 065
  7. VITAMINS [Concomitant]
     Route: 065

REACTIONS (1)
  - KNEE ARTHROPLASTY [None]
